FAERS Safety Report 7826989-6 (Version None)
Quarter: 2011Q4

REPORT INFORMATION
  Report Type: 
  Country: None (occurrence: None)
  Receive Date: 20111018
  Receipt Date: 20111007
  Transmission Date: 20120403
  Serious: Yes (Death)
  Sender: FDA-Public Use
  Company Number: 1000024587

PATIENT

DRUGS (1)
  1. MEMANTINE [Suspect]
     Dosage: 5 MG (5 MG,1 IN 1 D),ORAL
     Route: 048

REACTIONS (1)
  - DEATH [None]
